FAERS Safety Report 23273093 (Version 1)
Quarter: 2023Q4

REPORT INFORMATION
  Report Type: Spontaneous
  Country: US (occurrence: US)
  Receive Date: 20231207
  Receipt Date: 20231207
  Transmission Date: 20240110
  Serious: Yes (Other)
  Sender: FDA-Public Use
  Company Number: US-BAYER-2023A174744

PATIENT
  Age: 30 Year
  Sex: Female

DRUGS (1)
  1. MIRENA [Suspect]
     Active Substance: LEVONORGESTREL
     Dosage: 20?G/DAY
     Route: 015
     Dates: start: 20210111, end: 20231205

REACTIONS (8)
  - Pregnancy with contraceptive device [None]
  - Abortion spontaneous [None]
  - Genital haemorrhage [None]
  - Menstruation delayed [None]
  - Drug ineffective [None]
  - Infection [None]
  - Hormone level abnormal [None]
  - Mental status changes [None]

NARRATIVE: CASE EVENT DATE: 20230101
